FAERS Safety Report 6954949-6 (Version None)
Quarter: 2010Q3

REPORT INFORMATION
  Report Type: 
  Country: None (occurrence: None)
  Receive Date: 20100830
  Receipt Date: 20100816
  Transmission Date: 20110219
  Serious: Yes (Other)
  Sender: FDA-Public Use
  Company Number: GB-RANBAXY-2010RR-37570

PATIENT
  Age: 46 Year
  Sex: Female
  Weight: 82 kg

DRUGS (4)
  1. SERTRALINE HYDROCHLORIDE [Suspect]
     Indication: DEPRESSION
     Dosage: 50 MG, UNK
     Route: 048
     Dates: start: 20100305, end: 20100402
  2. SERTRALINE HYDROCHLORIDE [Suspect]
     Dosage: 100 MG, UNK
     Route: 048
     Dates: start: 20100317, end: 20100804
  3. CITALOPRAM [Concomitant]
     Indication: DEPRESSION
     Dosage: 10 MG, UNK
     Route: 048
     Dates: start: 20100116, end: 20100125
  4. CITALOPRAM [Concomitant]
     Dosage: 20 MG, UNK
     Route: 048
     Dates: start: 20100125, end: 20100222

REACTIONS (1)
  - COLITIS COLLAGENOUS [None]
